FAERS Safety Report 15401189 (Version 1)
Quarter: 2018Q3

REPORT INFORMATION
  Report Type: Spontaneous
  Country: US (occurrence: US)
  Receive Date: 20180919
  Receipt Date: 20180919
  Transmission Date: 20181010
  Serious: No
  Sender: FDA-Public Use
  Company Number: US-BAYER-2018-175163

PATIENT
  Age: 67 Year
  Sex: Female
  Weight: 127 kg

DRUGS (1)
  1. MIRALAX [Suspect]
     Active Substance: POLYETHYLENE GLYCOL 3350
     Indication: GASTROINTESTINAL DISORDER
     Dosage: 1 DF, 5 DAYS A WEEK FOR A COUPLE OF MONTHS
     Route: 048

REACTIONS (2)
  - Abdominal distension [Not Recovered/Not Resolved]
  - Drug ineffective [Unknown]
